FAERS Safety Report 9813080 (Version 6)
Quarter: 2016Q1

REPORT INFORMATION
  Report Type: Report from Study
  Country: US (occurrence: US)
  Receive Date: 20140113
  Receipt Date: 20160301
  Transmission Date: 20160526
  Serious: Yes (Other)
  Sender: FDA-Public Use
  Company Number: US-SANOFI-AVENTIS-2013SA036872

PATIENT
  Age: 49 Year
  Sex: Male

DRUGS (2)
  1. AUBAGIO [Suspect]
     Active Substance: TERIFLUNOMIDE
     Indication: MULTIPLE SCLEROSIS
     Route: 048
     Dates: start: 20130215, end: 20140131
  2. AUBAGIO [Suspect]
     Active Substance: TERIFLUNOMIDE
     Indication: MULTIPLE SCLEROSIS
     Route: 048
     Dates: start: 20140205

REACTIONS (9)
  - Blindness [Unknown]
  - Fine motor skill dysfunction [Unknown]
  - Musculoskeletal disorder [Not Recovered/Not Resolved]
  - Balance disorder [Unknown]
  - Multiple sclerosis relapse [Unknown]
  - Pain [Unknown]
  - Tinnitus [Unknown]
  - Deafness unilateral [Unknown]
  - Influenza [Recovered/Resolved]

NARRATIVE: CASE EVENT DATE: 2013
